FAERS Safety Report 4447960-0 (Version None)
Quarter: 2004Q3

REPORT INFORMATION
  Report Type: 
  Country: None (occurrence: None)
  Receive Date: 20040813
  Receipt Date: 20040630
  Transmission Date: 20050211
  Serious: No
  Sender: FDA-Public Use
  Company Number: S04-USA-03778-01

PATIENT
  Age: 83 Year
  Sex: Female

DRUGS (9)
  1. NAMENDA [Suspect]
     Indication: VASCULAR DEMENTIA
     Dosage: 5 MG QD PO
     Route: 048
     Dates: start: 20040604, end: 20040610
  2. NAMENDA [Suspect]
     Indication: VASCULAR DEMENTIA
     Dosage: 10 MG QD PO
     Route: 048
     Dates: start: 20040611, end: 20040617
  3. NAMENDA [Suspect]
     Indication: VASCULAR DEMENTIA
     Dosage: 15 MG QD PO
     Route: 048
     Dates: start: 20040618, end: 20040624
  4. NAMENDA [Suspect]
     Indication: VASCULAR DEMENTIA
     Dosage: 20 MG QD PO
     Route: 048
     Dates: start: 20040625
  5. ARICEPT [Concomitant]
  6. DOXAZOSIN [Concomitant]
  7. PAXIL [Concomitant]
  8. CALCIUM [Concomitant]
  9. ASPIRIN [Concomitant]

REACTIONS (5)
  - ANXIETY [None]
  - CONFUSIONAL STATE [None]
  - FATIGUE [None]
  - HEADACHE [None]
  - SPEECH DISORDER [None]
